FAERS Safety Report 9209788 (Version 1)
Quarter: 2013Q1

REPORT INFORMATION
  Report Type: Spontaneous
  Country: US (occurrence: None)
  Receive Date: 20120820
  Receipt Date: 20120820
  Transmission Date: 20140127
  Serious: No
  Sender: FDA-Public Use
  Company Number: 1000030195

PATIENT
  Age: 59 Year
  Sex: Female

DRUGS (7)
  1. VIIBRYD (VILAZODONE) (TABLETS) [Suspect]
     Indication: DEPRESSION
     Route: 048
     Dates: start: 20120423
  2. CLONAZEPAM (CLONAZEPAM) (CLONAZEPAM) [Concomitant]
  3. COZAAR (LOSARTAN POTASSIUM) (LOSARTAN POTASSIUM) [Concomitant]
  4. LAMICTAL (LAMOTRIGINE) (LAMOTRIGINE) [Concomitant]
  5. METFORMIN (METFORMIN) (METFORMIN) [Concomitant]
  6. PRAVASTATIN (PRAVASTATIN) PRAVASTATIN) [Concomitant]
  7. SEROQUEL (QUETIAPINE FUMARATE) (QUETIAPINE FUMARATE) [Concomitant]

REACTIONS (1)
  - Blister [None]
